FAERS Safety Report 23292214 (Version 2)
Quarter: 2023Q4

REPORT INFORMATION
  Report Type: Other
  Country: US (occurrence: None)
  Receive Date: 20231213
  Receipt Date: 20231214
  Transmission Date: 20240110
  Serious: No
  Sender: FDA-Public Use
  Company Number: US-ROCHE-3472340

PATIENT
  Age: 33 Year
  Sex: Female

DRUGS (14)
  1. OCREVUS [Suspect]
     Active Substance: OCRELIZUMAB
     Indication: Multiple sclerosis
     Dosage: THE FIRST TWO DOSES ARE ADMINISTERED WITHIN TWO WEEKS.
     Route: 042
     Dates: start: 20211104
  2. OCREVUS [Suspect]
     Active Substance: OCRELIZUMAB
     Dosage: THE FIRST TWO DOSES ARE ADMINISTERED WITHIN TWO WEEKS.
     Route: 042
     Dates: start: 20211118
  3. OCREVUS [Suspect]
     Active Substance: OCRELIZUMAB
     Route: 042
     Dates: start: 20220518
  4. OCREVUS [Suspect]
     Active Substance: OCRELIZUMAB
     Route: 042
     Dates: start: 20231205
  5. AMANTADINE [Concomitant]
     Active Substance: AMANTADINE
     Dates: start: 20220512, end: 20220812
  6. BACLOFEN [Concomitant]
     Active Substance: BACLOFEN
     Dates: start: 20211227
  7. GABAPENTIN [Concomitant]
     Active Substance: GABAPENTIN
     Dates: start: 20220214, end: 20221028
  8. JUNEL FE 1/20 [Concomitant]
     Active Substance: ETHINYL ESTRADIOL\NORETHINDRONE ACETATE
     Dates: start: 20210908
  9. VITAMIN D3 [Concomitant]
     Active Substance: CHOLECALCIFEROL
     Dates: start: 20211201
  10. ADDERALL [Concomitant]
     Active Substance: AMPHETAMINE ASPARTATE\AMPHETAMINE SULFATE\DEXTROAMPHETAMINE SACCHARATE\DEXTROAMPHETAMINE SULFATE
     Dates: start: 20220701
  11. NUEDEXTA [Concomitant]
     Active Substance: DEXTROMETHORPHAN HYDROBROMIDE\QUINIDINE SULFATE
     Dates: start: 20221128, end: 20231207
  12. HYDROXYZINE HYDROCHLORIDE [Concomitant]
     Active Substance: HYDROXYZINE HYDROCHLORIDE
     Dates: start: 20230701
  13. SPIRONOLACTONE [Concomitant]
     Active Substance: SPIRONOLACTONE
     Dates: start: 20231207
  14. CLARITIN [Concomitant]
     Active Substance: LORATADINE
     Dates: start: 20231207

REACTIONS (2)
  - Throat irritation [Recovered/Resolved]
  - Ear pruritus [Recovered/Resolved]

NARRATIVE: CASE EVENT DATE: 20231205
